FAERS Safety Report 5122096-4 (Version None)
Quarter: 2006Q4

REPORT INFORMATION
  Report Type: 
  Country: None (occurrence: None)
  Receive Date: 20061004
  Receipt Date: 20061004
  Transmission Date: 20070319
  Serious: Yes (Hospitalization, Other)
  Sender: FDA-Public Use
  Company Number: None

PATIENT
  Age: 4 Year
  Sex: Male
  Weight: 20.8655 kg

DRUGS (3)
  1. CONCERTA [Suspect]
     Indication: ATTENTION DEFICIT/HYPERACTIVITY DISORDER
     Dosage: 18 MG 1 TABLET ONCE DAILY PO
     Route: 048
     Dates: start: 20060328, end: 20060329
  2. CONCERTA [Suspect]
     Indication: AUTISM SPECTRUM DISORDER
     Dosage: 18 MG 1 TABLET ONCE DAILY PO
     Route: 048
     Dates: start: 20060328, end: 20060329
  3. CLONIDINE [Concomitant]

REACTIONS (3)
  - AGGRESSION [None]
  - ANGER [None]
  - HALLUCINATIONS, MIXED [None]
